FAERS Safety Report 6249134-X (Version None)
Quarter: 2009Q2

REPORT INFORMATION
  Report Type: 
  Country: None (occurrence: None)
  Receive Date: 20090624
  Receipt Date: 20090624
  Transmission Date: 20091009
  Serious: Yes (Other)
  Sender: FDA-Public Use
  Company Number: None

PATIENT
  Age: 48 Year
  Sex: Female
  Weight: 83.0083 kg

DRUGS (1)
  1. DIOVAN HCT [Suspect]
     Indication: HYPERTENSION
     Dosage: 320MG/25MG 1 PILL PER DAY PO
     Route: 048
     Dates: start: 20090510, end: 20090602

REACTIONS (7)
  - BACK PAIN [None]
  - BLOOD GLUCOSE INCREASED [None]
  - HYPOAESTHESIA [None]
  - MYALGIA [None]
  - OEDEMA PERIPHERAL [None]
  - PAIN IN EXTREMITY [None]
  - TENDONITIS [None]
